FAERS Safety Report 23612119 (Version 1)
Quarter: 2024Q1

REPORT INFORMATION
  Report Type: Spontaneous
  Country: US (occurrence: None)
  Receive Date: 20240308
  Receipt Date: 20240308
  Transmission Date: 20240410
  Serious: No
  Sender: FDA-Public Use
  Company Number: None

PATIENT
  Age: 60 Year
  Sex: Male

DRUGS (1)
  1. TIRZEPATIDE [Suspect]
     Active Substance: TIRZEPATIDE
     Dosage: 0.75 ML WEEKLY SUBCUTNEOUS
     Route: 058

REACTIONS (3)
  - Rash [None]
  - Therapy interrupted [None]
  - Drug rechallenge positive [None]

NARRATIVE: CASE EVENT DATE: 20240307
